FAERS Safety Report 9536253 (Version 1)
Quarter: 2013Q3

REPORT INFORMATION
  Report Type: Spontaneous
  Country: US (occurrence: US)
  Receive Date: 20130919
  Receipt Date: 20130919
  Transmission Date: 20140515
  Serious: Yes (Other)
  Sender: FDA-Public Use
  Company Number: US-ASTRAZENECA-2013SE69365

PATIENT
  Age: 18 Year
  Sex: Male

DRUGS (4)
  1. SEROQUEL [Suspect]
     Indication: BIPOLAR DISORDER
     Route: 048
  2. SEROQUEL [Suspect]
     Indication: BIPOLAR DISORDER
     Route: 048
  3. DEPAKOTE [Concomitant]
  4. TRILEPTAL [Concomitant]

REACTIONS (5)
  - Convulsion [Recovered/Resolved]
  - Aggression [Unknown]
  - Agitation [Unknown]
  - Anger [Unknown]
  - Abnormal behaviour [Unknown]
